FAERS Safety Report 7644532-1 (Version None)
Quarter: 2011Q3

REPORT INFORMATION
  Report Type: 
  Country: None (occurrence: None)
  Receive Date: 20110729
  Receipt Date: 20110720
  Transmission Date: 20111222
  Serious: Yes (Other)
  Sender: FDA-Public Use
  Company Number: US-AMGEN-USASP2011037260

PATIENT
  Age: 65 Year
  Sex: Female

DRUGS (4)
  1. RIBAVIRIN [Concomitant]
  2. PEGINTERFERON [Concomitant]
  3. NEUPOGEN [Suspect]
     Indication: PRODUCT USED FOR UNKNOWN INDICATION
     Dosage: 300 A?G, UNK
     Route: 058
  4. PROCRIT [Suspect]
     Indication: ANAEMIA
     Dosage: 40000 IU, UNK
     Route: 058

REACTIONS (2)
  - ANTI-ERYTHROPOIETIN ANTIBODY POSITIVE [None]
  - APLASIA PURE RED CELL [None]
